FAERS Safety Report 6080028-9 (Version None)
Quarter: 2009Q1

REPORT INFORMATION
  Report Type: 
  Country: None (occurrence: None)
  Receive Date: 20090217
  Receipt Date: 20090209
  Transmission Date: 20090719
  Serious: Yes (Hospitalization, Other)
  Sender: FDA-Public Use
  Company Number: US-AVENTIS-200911086US

PATIENT
  Age: 74 Year
  Sex: Female

DRUGS (8)
  1. LANTUS [Suspect]
     Route: 058
     Dates: start: 20070101
  2. OPTICLIK (INSULIN INJECTION PEN) [Suspect]
     Dates: start: 20070101
  3. NORTRIPTYLINE HCL [Suspect]
     Dosage: DOSE: UNK
  4. GABAPENTIN [Suspect]
     Dosage: DOSE: UNK
  5. METOPROLOL TARTRATE [Suspect]
     Dosage: DOSE: UNK
  6. METOPROLOL TARTRATE [Suspect]
     Dosage: DOSE: UNK
  7. PERCOCET [Suspect]
     Dosage: DOSE: UNK
  8. NOVOLOG [Concomitant]
     Dosage: DOSE: UNK

REACTIONS (10)
  - BACK PAIN [None]
  - BLOOD GLUCOSE DECREASED [None]
  - BLOOD PRESSURE INCREASED [None]
  - CHILLS [None]
  - CONTUSION [None]
  - DECREASED APPETITE [None]
  - FALL [None]
  - GASTROINTESTINAL DISORDER [None]
  - MALAISE [None]
  - NEUROPATHY PERIPHERAL [None]
